FAERS Safety Report 6080619-5 (Version None)
Quarter: 2009Q1

REPORT INFORMATION
  Report Type: 
  Country: None (occurrence: None)
  Receive Date: 20090217
  Receipt Date: 20070531
  Transmission Date: 20090719
  Serious: Yes (Hospitalization)
  Sender: FDA-Public Use
  Company Number: FR-PFIZER INC-2009161946

PATIENT

DRUGS (6)
  1. EPIRUBICIN HCL [Suspect]
     Indication: GASTRIC CANCER
     Dosage: UNK
  2. CISPLATIN [Suspect]
     Indication: GASTRIC CANCER
     Dosage: UNK
  3. CAPECITABINE [Suspect]
     Indication: GASTRIC CANCER
     Dosage: UNK
  4. AMARYL [Concomitant]
     Dosage: UNK
     Route: 048
  5. ATENOLOL [Concomitant]
     Dosage: 50 MG, DAILY
     Route: 048
  6. OMEPRAZOLE [Concomitant]
     Dosage: 20 MG, DAILY
     Route: 048

REACTIONS (2)
  - CONSTIPATION [None]
  - VOMITING [None]
